FAERS Safety Report 6976815-2 (Version None)
Quarter: 2010Q3

REPORT INFORMATION
  Report Type: 
  Country: None (occurrence: None)
  Receive Date: 20100910
  Receipt Date: 20100901
  Transmission Date: 20110219
  Serious: Yes (Other)
  Sender: FDA-Public Use
  Company Number: A0840314A

PATIENT
  Age: 67 Year
  Sex: Male

DRUGS (7)
  1. AVANDIA [Suspect]
     Route: 048
     Dates: start: 20040101, end: 20070101
  2. GLUCOPHAGE [Concomitant]
  3. LANTUS [Concomitant]
  4. LYRICA [Concomitant]
  5. ZETIA [Concomitant]
  6. PRINIVIL [Concomitant]
  7. LIPITOR [Concomitant]

REACTIONS (1)
  - MYOCARDIAL INFARCTION [None]
